FAERS Safety Report 9008299 (Version 1)
Quarter: 2013Q1

REPORT INFORMATION
  Report Type: Spontaneous
  Country: NL (occurrence: NL)
  Receive Date: 20130111
  Receipt Date: 20130111
  Transmission Date: 20140127
  Serious: Yes (Death)
  Sender: FDA-Public Use
  Company Number: PHHY2013NL002305

PATIENT
  Age: 70 Year
  Sex: Male

DRUGS (4)
  1. ZOMETA [Suspect]
     Indication: PROSTATE CANCER METASTATIC
     Dosage: 4 MG/ 100ML, ONCE PER 56 DAYS
  2. ZOMETA [Suspect]
     Dosage: 4 MG/ 100ML, ONCE PER 56 DAYS
     Dates: start: 20101223
  3. ZOMETA [Suspect]
     Dosage: 4 MG/ 100ML, ONCE PER 56 DAYS
     Dates: start: 20121001
  4. ZOMETA [Suspect]
     Dosage: 4 MG/ 100ML, ONCE PER 56 DAYS
     Dates: start: 20121129

REACTIONS (1)
  - Death [Fatal]
